FAERS Safety Report 19953624 (Version 12)
Quarter: 2022Q4

REPORT INFORMATION
  Report Type: Report from Study
  Country: JP (occurrence: None)
  Receive Date: 20211013
  Receipt Date: 20221116
  Transmission Date: 20230112
  Serious: Yes (Hospitalization)
  Sender: FDA-Public Use
  Company Number: JP-ROCHE-2931531

PATIENT
  Age: 72 Year
  Sex: Female
  Weight: 61.9 kg

DRUGS (44)
  1. SATRALIZUMAB [Suspect]
     Active Substance: SATRALIZUMAB
     Indication: Neuromyelitis optica spectrum disorder
     Dosage: START DATE OF MOST RECENT DOSE OF STUDY DRUG PRIOR TO AE IS 09-JUN-2021 10:47 AM?END DATE OF MOST RE
     Route: 058
     Dates: start: 20210317
  2. SULFAMETHOXAZOLE\TRIMETHOPRIM [Concomitant]
     Active Substance: SULFAMETHOXAZOLE\TRIMETHOPRIM
     Indication: Neuromyelitis optica spectrum disorder
     Route: 048
  3. ZOLPIDEM TARTRATE [Concomitant]
     Active Substance: ZOLPIDEM TARTRATE
     Indication: Neuromyelitis optica spectrum disorder
  4. BROMFENAC SODIUM HYDRATE [Concomitant]
     Indication: Neuromyelitis optica spectrum disorder
  5. CYMBALTA [Concomitant]
     Active Substance: DULOXETINE HYDROCHLORIDE
     Indication: Neuromyelitis optica spectrum disorder
     Dosage: MEDICATION ONGOING: YES,
     Route: 048
     Dates: start: 20161109
  6. LYRICA [Concomitant]
     Active Substance: PREGABALIN
     Indication: Neuromyelitis optica spectrum disorder
     Route: 048
     Dates: start: 20201008
  7. LYRICA [Concomitant]
     Active Substance: PREGABALIN
     Route: 048
     Dates: start: 20220112
  8. MAGNESIUM OXIDE [Concomitant]
     Active Substance: MAGNESIUM OXIDE
     Indication: Neuromyelitis optica spectrum disorder
     Dosage: MEDICATION ONGOING: YES
     Route: 048
  9. ACTONEL EC [Concomitant]
     Indication: Neuromyelitis optica spectrum disorder
     Dosage: MEDICATION ONGOING YES; GIVEN FOR PROPHYLAXIS YES
     Route: 048
     Dates: end: 20210801
  10. SENNOSIDES [Concomitant]
     Active Substance: SENNOSIDES
     Indication: Neuromyelitis optica spectrum disorder
     Dosage: MEDICATION ONGOING YES
     Route: 048
  11. ZOLPIDEM TARTRATE [Concomitant]
     Active Substance: ZOLPIDEM TARTRATE
     Indication: Neuromyelitis optica spectrum disorder
     Route: 048
     Dates: start: 20211013, end: 20211013
  12. BROMFENAC SODIUM [Concomitant]
     Active Substance: BROMFENAC SODIUM
     Indication: Neuromyelitis optica spectrum disorder
     Dosage: MEDICATION ONGOING YES; DOSE: 1 PUFF;  MEDICATION DOSE FORM: LIQUID; GIVEN FOR PROPHYLAXIS YES
     Route: 047
  13. AZATHIOPRINE [Concomitant]
     Active Substance: AZATHIOPRINE
     Indication: Neuromyelitis optica spectrum disorder
     Dosage: MEDICATION ONGOING YES; GIVEN FOR PROPHYLAXIS YES
     Route: 048
     Dates: start: 20170612
  14. COMIRNATY [Concomitant]
     Active Substance: TOZINAMERAN
     Indication: Neuromyelitis optica spectrum disorder
     Dosage: MEDICATION ONGOING: YES
     Route: 030
     Dates: start: 20210628, end: 20210628
  15. COMIRNATY [Concomitant]
     Active Substance: TOZINAMERAN
     Dosage: MEDICATION ONGOING: YES
     Route: 030
     Dates: start: 20210719, end: 20210719
  16. SOLU-CORTEF [Concomitant]
     Active Substance: HYDROCORTISONE SODIUM SUCCINATE
     Indication: Neuromyelitis optica spectrum disorder
     Route: 042
     Dates: start: 20211011, end: 20211011
  17. SOLU-CORTEF [Concomitant]
     Active Substance: HYDROCORTISONE SODIUM SUCCINATE
     Route: 042
     Dates: start: 20211012, end: 20211012
  18. CALCIUM GLUCONATE\DEXTROSE\MAGNESIUM CHLORIDE\POTASSIUM CHLORIDE\SODIU [Concomitant]
     Active Substance: CALCIUM GLUCONATE\DEXTROSE\MAGNESIUM CHLORIDE\POTASSIUM CHLORIDE\SODIUM ACETATE\SODIUM CHLORIDE\TRIS
     Route: 042
     Dates: start: 20211011, end: 20211011
  19. CALCIUM GLUCONATE\DEXTROSE\MAGNESIUM CHLORIDE\POTASSIUM CHLORIDE\SODIU [Concomitant]
     Active Substance: CALCIUM GLUCONATE\DEXTROSE\MAGNESIUM CHLORIDE\POTASSIUM CHLORIDE\SODIUM ACETATE\SODIUM CHLORIDE\TRIS
     Route: 042
     Dates: start: 20211012, end: 20211012
  20. FENTANYL [Concomitant]
     Active Substance: FENTANYL
     Indication: Neuromyelitis optica spectrum disorder
     Route: 042
     Dates: start: 20211011, end: 20211011
  21. REMIFENTANIL [Concomitant]
     Active Substance: REMIFENTANIL
     Indication: Neuromyelitis optica spectrum disorder
     Route: 042
     Dates: start: 20211011, end: 20211011
  22. PROPOFOL [Concomitant]
     Active Substance: PROPOFOL
     Indication: Neuromyelitis optica spectrum disorder
     Route: 042
     Dates: start: 20211011, end: 20211011
  23. ROCURONIUM BROMIDE [Concomitant]
     Active Substance: ROCURONIUM BROMIDE
     Indication: Neuromyelitis optica spectrum disorder
     Route: 042
     Dates: start: 20211011, end: 20211011
  24. SAXIZON [Concomitant]
     Active Substance: HYDROCORTISONE SODIUM SUCCINATE
     Indication: Neuromyelitis optica spectrum disorder
     Route: 042
     Dates: start: 20211011, end: 20211011
  25. SUPRANE [Concomitant]
     Active Substance: DESFLURANE
     Indication: Neuromyelitis optica spectrum disorder
     Route: 055
     Dates: start: 20211011, end: 20211011
  26. CEFAZOLIN SODIUM [Concomitant]
     Active Substance: CEFAZOLIN SODIUM
     Indication: Neuromyelitis optica spectrum disorder
     Route: 042
     Dates: start: 20211011, end: 20211011
  27. ATROPINE [Concomitant]
     Active Substance: ATROPINE
     Indication: Neuromyelitis optica spectrum disorder
     Route: 042
     Dates: start: 20211011, end: 20211011
  28. XYLOCAINE [Concomitant]
     Active Substance: LIDOCAINE HYDROCHLORIDE
     Indication: Neuromyelitis optica spectrum disorder
     Route: 042
     Dates: start: 20211011, end: 20211011
  29. INOVAN INJECTION [Concomitant]
     Indication: Neuromyelitis optica spectrum disorder
     Route: 042
     Dates: start: 20211011, end: 20211011
  30. NOR-ADRENALIN [Concomitant]
     Indication: Neuromyelitis optica spectrum disorder
     Route: 042
     Dates: start: 20211011, end: 20211011
  31. ACETAMINOPHEN [Concomitant]
     Active Substance: ACETAMINOPHEN
     Indication: Neuromyelitis optica spectrum disorder
     Route: 042
     Dates: start: 20211011, end: 20211011
  32. PRIMPERAN [Concomitant]
     Active Substance: METOCLOPRAMIDE HYDROCHLORIDE
     Indication: Neuromyelitis optica spectrum disorder
     Route: 042
     Dates: start: 20211011, end: 20211011
  33. LUNESTA [Concomitant]
     Active Substance: ESZOPICLONE
     Indication: Neuromyelitis optica spectrum disorder
     Route: 048
     Dates: start: 20211014, end: 20220614
  34. PEROSPIRONE HYDROCHLORIDE [Concomitant]
     Active Substance: PEROSPIRONE HYDROCHLORIDE
     Indication: Neuromyelitis optica spectrum disorder
     Route: 048
     Dates: start: 20211014, end: 20211017
  35. CLARITHROMYCIN [Concomitant]
     Active Substance: CLARITHROMYCIN
     Indication: Neuromyelitis optica spectrum disorder
     Route: 048
     Dates: start: 20211014, end: 20211214
  36. ACTONEL [Concomitant]
     Active Substance: RISEDRONATE SODIUM
     Indication: Neuromyelitis optica spectrum disorder
     Route: 048
     Dates: start: 20210801
  37. ACTONEL [Concomitant]
     Active Substance: RISEDRONATE SODIUM
     Route: 048
     Dates: start: 20211201
  38. DICLOFENAC SODIUM [Concomitant]
     Active Substance: DICLOFENAC SODIUM
     Indication: Lumbar radiculopathy
     Route: 048
     Dates: start: 20220420
  39. NEOSYNESIN KOWA [Concomitant]
     Indication: Neuromyelitis optica spectrum disorder
     Route: 042
     Dates: start: 20211011, end: 20211011
  40. OLMESARTAN MEDOXOMIL [Concomitant]
     Active Substance: OLMESARTAN MEDOXOMIL
     Indication: Neuromyelitis optica spectrum disorder
     Route: 048
  41. LOXOPROFEN [Concomitant]
     Active Substance: LOXOPROFEN
     Indication: Neuromyelitis optica spectrum disorder
     Route: 048
     Dates: start: 20171109
  42. LOXOPROFEN [Concomitant]
     Active Substance: LOXOPROFEN
     Route: 061
  43. LOXOPROFEN SODIUM [Concomitant]
     Active Substance: LOXOPROFEN SODIUM
     Indication: Neuromyelitis optica spectrum disorder
     Route: 061
  44. PREDONINE [Concomitant]
     Active Substance: PREDNISOLONE
     Indication: Neuromyelitis optica spectrum disorder
     Route: 048
     Dates: start: 20201224

REACTIONS (1)
  - Sinusitis fungal [Recovered/Resolved]

NARRATIVE: CASE EVENT DATE: 20210707
